FAERS Safety Report 11047987 (Version 2)
Quarter: 2015Q2

REPORT INFORMATION
  Report Type: Spontaneous
  Country: DE (occurrence: DE)
  Receive Date: 20150420
  Receipt Date: 20150513
  Transmission Date: 20150821
  Serious: Yes (Other)
  Sender: FDA-Public Use
  Company Number: DE-BRISTOL-MYERS SQUIBB COMPANY-BMS-2015-022607

PATIENT
  Age: 72 Year
  Sex: Male

DRUGS (7)
  1. NILOTINIB [Concomitant]
     Active Substance: NILOTINIB
     Indication: PRODUCT USED FOR UNKNOWN INDICATION
     Dosage: UNK
     Route: 065
     Dates: start: 201107
  2. PONATINIB [Concomitant]
     Active Substance: PONATINIB
     Dosage: UNK
     Route: 065
     Dates: start: 201311, end: 201407
  3. LITALIR [Suspect]
     Active Substance: HYDROXYUREA
     Indication: CHRONIC MYELOID LEUKAEMIA
  4. LITALIR [Suspect]
     Active Substance: HYDROXYUREA
     Indication: LEUKOCYTOSIS
     Dosage: UNK
     Route: 065
     Dates: start: 201311
  5. IMATINIB [Concomitant]
     Active Substance: IMATINIB
     Indication: PRODUCT USED FOR UNKNOWN INDICATION
     Dosage: UNK
     Route: 065
     Dates: start: 201102, end: 201106
  6. PONATINIB [Concomitant]
     Active Substance: PONATINIB
     Indication: PRODUCT USED FOR UNKNOWN INDICATION
     Dosage: UNK
     Route: 065
     Dates: start: 201210
  7. LITALIR [Suspect]
     Active Substance: HYDROXYUREA
     Indication: THROMBOCYTOSIS
     Dosage: UNK
     Route: 065
     Dates: start: 201102

REACTIONS (2)
  - Blood disorder [Unknown]
  - Neurological symptom [Unknown]

NARRATIVE: CASE EVENT DATE: 201103
